FAERS Safety Report 22020535 (Version 1)
Quarter: 2023Q1

REPORT INFORMATION
  Report Type: Spontaneous
  Country: CA (occurrence: CA)
  Receive Date: 20230222
  Receipt Date: 20230222
  Transmission Date: 20230417
  Serious: Yes (Other)
  Sender: FDA-Public Use
  Company Number: CA-002147023-NVSC2023CA034983

PATIENT
  Sex: Male

DRUGS (9)
  1. RITUXIMAB [Suspect]
     Active Substance: RITUXIMAB
     Indication: Rheumatoid arthritis
     Dosage: UNK
     Route: 041
  2. MYCOPHENOLATE MOFETIL [Suspect]
     Active Substance: MYCOPHENOLATE MOFETIL
     Indication: Systemic scleroderma
     Dosage: 1.5 MG, BID (2 EVERY 1 DAYS)
     Route: 065
  3. MYCOPHENOLATE MOFETIL [Suspect]
     Active Substance: MYCOPHENOLATE MOFETIL
     Indication: Interstitial lung disease
     Dosage: 1 G, BID (2 EVERY 1 DAYS)
     Route: 065
  4. NIFEDIPINE [Suspect]
     Active Substance: NIFEDIPINE
     Indication: Product used for unknown indication
     Dosage: UNK
     Route: 065
  5. NIFEDIPINE [Suspect]
     Active Substance: NIFEDIPINE
     Dosage: UNK
     Route: 065
  6. AMBRISENTAN [Concomitant]
     Active Substance: AMBRISENTAN
     Indication: Product used for unknown indication
     Dosage: UNK, QD (1 EVERY 1 DAYS)
     Route: 065
  7. LASIX [Concomitant]
     Active Substance: FUROSEMIDE
     Indication: Product used for unknown indication
     Dosage: UNK, BID (2 EVERY 1 DAYS)
     Route: 065
  8. MAGNESIUM [Concomitant]
     Active Substance: MAGNESIUM
     Indication: Product used for unknown indication
     Dosage: UNK
     Route: 065
  9. METOLAZONE [Concomitant]
     Active Substance: METOLAZONE
     Indication: Product used for unknown indication
     Dosage: UNK
     Route: 065

REACTIONS (21)
  - Aortic bruit [Unknown]
  - Blood pressure systolic abnormal [Unknown]
  - Cardiac failure [Unknown]
  - Dilatation ventricular [Unknown]
  - Ejection fraction abnormal [Unknown]
  - Fall [Unknown]
  - Hypotension [Unknown]
  - Hypotension [Unknown]
  - Ill-defined disorder [Unknown]
  - Joint contracture [Unknown]
  - Joint range of motion decreased [Unknown]
  - Myocardial oedema [Unknown]
  - Occult blood positive [Unknown]
  - Osteoporosis [Unknown]
  - Pelvic fracture [Unknown]
  - Pulmonary fibrosis [Unknown]
  - Rales [Unknown]
  - Right atrial dilatation [Unknown]
  - Skin depigmentation [Unknown]
  - Systemic scleroderma [Unknown]
  - Off label use [Unknown]
